FAERS Safety Report 9068379 (Version 1)
Quarter: 2013Q1

REPORT INFORMATION
  Report Type: Report from Study
  Country: US (occurrence: US)
  Receive Date: 20130206
  Receipt Date: 20130206
  Transmission Date: 20140127
  Serious: Yes (Other)
  Sender: FDA-Public Use
  Company Number: US-ABBOTT-13P-163-1042514-00

PATIENT
  Age: 30 Year
  Sex: Female

DRUGS (5)
  1. HUMIRA [Suspect]
     Indication: CROHN^S DISEASE
     Dates: start: 201003
  2. COLAZAL [Concomitant]
     Indication: CROHN^S DISEASE
     Dosage: 3 CAPSULES
  3. 6MP [Concomitant]
     Indication: CROHN^S DISEASE
  4. LANSOPRAZOLE [Concomitant]
     Indication: DYSPEPSIA
  5. CLARITIN [Concomitant]
     Indication: SEASONAL ALLERGY

REACTIONS (4)
  - Ovarian cyst [Recovering/Resolving]
  - Menstrual disorder [Unknown]
  - Impaired healing [Unknown]
  - Injection site pain [Unknown]
